FAERS Safety Report 12422911 (Version 1)
Quarter: 2016Q2

REPORT INFORMATION
  Report Type: Spontaneous
  Country: US (occurrence: None)
  Receive Date: 20160531
  Receipt Date: 20160531
  Transmission Date: 20160815
  Serious: Yes (Disabling)
  Sender: FDA-Public Use
  Company Number: None

PATIENT
  Age: 52 Year
  Sex: Male
  Weight: 192 kg

DRUGS (3)
  1. CELEXA [Concomitant]
     Active Substance: CITALOPRAM HYDROBROMIDE
  2. CIPROFLOXACIN HCL [Suspect]
     Active Substance: CIPROFLOXACIN HYDROCHLORIDE
     Indication: URINARY TRACT INFECTION
     Route: 048
     Dates: start: 20160205, end: 20160304
  3. CHOLESTYRAMINE. [Concomitant]
     Active Substance: CHOLESTYRAMINE

REACTIONS (9)
  - Nervousness [None]
  - Tinnitus [None]
  - Diarrhoea [None]
  - Asthenia [None]
  - Headache [None]
  - Impaired work ability [None]
  - Feeling abnormal [None]
  - Weight decreased [None]
  - Suicidal ideation [None]

NARRATIVE: CASE EVENT DATE: 20160205
